FAERS Safety Report 18633922 (Version 3)
Quarter: 2021Q4

REPORT INFORMATION
  Report Type: Other
  Country: CZ (occurrence: CZ)
  Receive Date: 20201218
  Receipt Date: 20211102
  Transmission Date: 20220303
  Serious: Yes (Other)
  Sender: FDA-Public Use
  Company Number: CZ-TEVA-2020-CZ-1857803

PATIENT
  Age: 61 Year
  Sex: Female

DRUGS (4)
  1. CARBOPLATIN [Suspect]
     Active Substance: CARBOPLATIN
     Indication: Ovarian epithelial cancer
     Dosage: ON 16/FEB/2017, SHE RECEIVED MOST RECENT DOSE OF CARBOPLATIN.
     Route: 065
     Dates: start: 20160425
  2. AVASTIN [Suspect]
     Active Substance: BEVACIZUMAB
     Indication: Ovarian epithelial cancer
     Dosage: ON 16/FEB/2017, SHE RECEIVED MOST RECENT DOSE OF BEVACIZUMAB.
     Route: 065
     Dates: start: 20160425
  3. PACLITAXEL [Suspect]
     Active Substance: PACLITAXEL
     Indication: Ovarian epithelial cancer
     Route: 065
     Dates: start: 20160425, end: 20170216
  4. PACLITAXEL [Suspect]
     Active Substance: PACLITAXEL
     Route: 065
     Dates: start: 20180803

REACTIONS (4)
  - Febrile neutropenia [Recovered/Resolved]
  - Polyneuropathy [Recovered/Resolved]
  - Cancer fatigue [Unknown]
  - Nausea [Recovered/Resolved]

NARRATIVE: CASE EVENT DATE: 20170216
